FAERS Safety Report 8259865-8 (Version None)
Quarter: 2012Q2

REPORT INFORMATION
  Report Type: 
  Country: None (occurrence: None)
  Receive Date: 20120404
  Receipt Date: 20120328
  Transmission Date: 20120825
  Serious: Yes (Hospitalization)
  Sender: FDA-Public Use
  Company Number: US-GLAXOSMITHKLINE-A0971488A

PATIENT
  Age: 48 Year
  Sex: Female

DRUGS (4)
  1. LAMICTAL [Suspect]
     Indication: BIPOLAR DISORDER
     Dosage: 300MG AT NIGHT
     Route: 048
  2. TOPAMAX [Concomitant]
  3. KLONOPIN [Concomitant]
  4. NUVARING [Suspect]
     Indication: CONTRACEPTION
     Dates: start: 20120201

REACTIONS (5)
  - ANTICONVULSANT DRUG LEVEL DECREASED [None]
  - MENTAL DISORDER [None]
  - SUICIDAL IDEATION [None]
  - DEPRESSION [None]
  - DRUG INTERACTION [None]
